FAERS Safety Report 6125296-X (Version None)
Quarter: 2009Q1

REPORT INFORMATION
  Report Type: 
  Country: None (occurrence: None)
  Receive Date: 20090317
  Receipt Date: 20090312
  Transmission Date: 20090719
  Serious: Yes (Hospitalization)
  Sender: FDA-Public Use
  Company Number: GXKR2009DE03100

PATIENT
  Age: 60 Year
  Sex: Male
  Weight: 85 kg

DRUGS (7)
  1. ASPIRIN [Suspect]
     Dosage: 100 MG, QD, ORAL
     Route: 048
     Dates: start: 20060201
  2. CAPTOPRIL [Suspect]
     Dosage: 50 MG, BID, ORAL
     Route: 048
  3. ATACAND [Concomitant]
     Dosage: 16 MG, QD, ORAL
     Route: 048
  4. ATACAND HCT [Suspect]
     Dosage: 16 MG, QD, ORAL
     Route: 048
  5. TERUTROBAN [Concomitant]
  6. BISOHEXAL (BISOPROLOL HEMIFUMARATE) [Concomitant]
  7. METFORMIN HYDROCHLORIDE [Concomitant]

REACTIONS (1)
  - RENAL IMPAIRMENT [None]
